FAERS Safety Report 7813682-9 (Version None)
Quarter: 2011Q4

REPORT INFORMATION
  Report Type: 
  Country: None (occurrence: None)
  Receive Date: 20111014
  Receipt Date: 20111003
  Transmission Date: 20120403
  Serious: Yes (Hospitalization, Other)
  Sender: FDA-Public Use
  Company Number: US-ELI_LILLY_AND_COMPANY-US201110001224

PATIENT
  Sex: Female

DRUGS (7)
  1. FORTEO [Suspect]
     Indication: OSTEOPOROSIS
     Dosage: 20 UG, QD
     Dates: start: 20110201
  2. SAXAGLIPTIN [Concomitant]
     Indication: DIABETES MELLITUS
     Dosage: 0.5 DF, QD
  3. SERTRALINE HYDROCHLORIDE [Concomitant]
     Dosage: 1 DF, UNK
  4. POTASSIUM [Concomitant]
  5. COQ10 [Concomitant]
  6. GABAPENTIN [Concomitant]
     Dosage: 800 MG, UNK
  7. HYDROCODONE BITARTRATE [Concomitant]
     Dosage: 0.5 DF, UNK

REACTIONS (4)
  - ARTHRITIS [None]
  - SPINAL COLUMN STENOSIS [None]
  - PAIN [None]
  - URINARY TRACT INFECTION [None]
